FAERS Safety Report 8570912 (Version 4)
Quarter: 2014Q2

REPORT INFORMATION
  Report Type: Spontaneous
  Country: US (occurrence: US)
  Receive Date: 20120521
  Receipt Date: 20140404
  Transmission Date: 20141212
  Serious: Yes (Death, Hospitalization, Other)
  Sender: FDA-Public Use
  Company Number: US-B.I. PHARMACEUTICALS,INC./RIDGEFIELD-2012-BP-11053BP

PATIENT
  Age: 76 Year
  Sex: Female
  Weight: 106.5 kg

DRUGS (13)
  1. PRADAXA [Suspect]
     Indication: ATRIAL FIBRILLATION
     Dosage: 300 MG
     Route: 065
     Dates: start: 201201, end: 20120129
  2. PRADAXA [Suspect]
     Indication: ANTICOAGULANT THERAPY
  3. HYDROCHLOROTHIAZIDE [Concomitant]
     Dosage: 25 MG
     Route: 048
     Dates: start: 201107, end: 201108
  4. HYDROCODONE-ACETAMIPHEN [Concomitant]
     Route: 065
  5. LASIX [Concomitant]
     Route: 065
  6. LEVAQUIN [Concomitant]
     Dosage: 500 MG
     Route: 048
  7. LIPITOR [Concomitant]
     Route: 065
  8. LISINOPRIL [Concomitant]
     Dosage: 40 MG
     Route: 048
     Dates: start: 2007
  9. LISINOPRIL [Concomitant]
     Route: 065
     Dates: start: 201107, end: 201108
  10. LOPRESSOR [Concomitant]
     Dosage: 200 MG
     Route: 048
  11. OMEPRAZOLE [Concomitant]
     Dosage: 20 MG
     Route: 048
  12. ZANTAC [Concomitant]
     Dosage: 300 MG
     Route: 048
  13. ASPIRIN [Concomitant]
     Dosage: 325 MG
     Route: 048

REACTIONS (4)
  - Cerebral haemorrhage [Fatal]
  - Haemorrhagic stroke [Fatal]
  - Ischaemic stroke [Unknown]
  - Myocardial infarction [Unknown]
